FAERS Safety Report 11880601 (Version 2)
Quarter: 2016Q1

REPORT INFORMATION
  Report Type: Spontaneous
  Country: US (occurrence: US)
  Receive Date: 20151230
  Receipt Date: 20160120
  Transmission Date: 20160526
  Serious: No
  Sender: FDA-Public Use
  Company Number: US-GLAXOSMITHKLINE-US2015GSK180707

PATIENT
  Sex: Female

DRUGS (1)
  1. BENLYSTA [Suspect]
     Active Substance: BELIMUMAB
     Indication: SYSTEMIC LUPUS ERYTHEMATOSUS
     Dosage: UNK, U

REACTIONS (1)
  - Surgery [Unknown]
